FAERS Safety Report 7047706-6 (Version None)
Quarter: 2010Q4

REPORT INFORMATION
  Report Type: 
  Country: None (occurrence: None)
  Receive Date: 20101015
  Receipt Date: 20101005
  Transmission Date: 20110411
  Serious: No
  Sender: FDA-Public Use
  Company Number: US-ELI_LILLY_AND_COMPANY-US201010001610

PATIENT
  Age: 57 Year
  Sex: Male

DRUGS (1)
  1. CIALIS [Suspect]
     Indication: ERECTILE DYSFUNCTION
     Dosage: 20 MG, UNK
     Dates: start: 20101001, end: 20101001

REACTIONS (3)
  - DRUG INEFFECTIVE [None]
  - HEADACHE [None]
  - VISION BLURRED [None]
